FAERS Safety Report 7239501-X (Version None)
Quarter: 2011Q1

REPORT INFORMATION
  Report Type: 
  Country: None (occurrence: None)
  Receive Date: 20110121
  Receipt Date: 20110114
  Transmission Date: 20110831
  Serious: Yes (Other)
  Sender: FDA-Public Use
  Company Number: US-US-EMD SERONO, INC.-7036363

PATIENT
  Sex: Male

DRUGS (1)
  1. REBIF [Suspect]
     Indication: PRODUCT USED FOR UNKNOWN INDICATION
     Route: 058
     Dates: start: 20080820

REACTIONS (4)
  - INJECTION SITE REACTION [None]
  - INJECTION SITE HAEMATOMA [None]
  - PNEUMONIA PRIMARY ATYPICAL [None]
  - FATIGUE [None]
